FAERS Safety Report 22179827 (Version 1)
Quarter: 2023Q2

REPORT INFORMATION
  Report Type: Spontaneous
  Country: US (occurrence: US)
  Receive Date: 20230406
  Receipt Date: 20230406
  Transmission Date: 20230722
  Serious: No
  Sender: FDA-Public Use
  Company Number: US-Ipsen Biopharmaceuticals, Inc.-2023-06289

PATIENT
  Age: 64 Year
  Sex: Female
  Weight: 68 kg

DRUGS (2)
  1. DYSPORT [Suspect]
     Active Substance: ABOBOTULINUMTOXINA
     Indication: Skin wrinkling
     Dosage: 10 UNITS FOR GLABELLAR LINES AND 10 UNITS FOR LATERAL CANTHAL LINES. DILUENTS USED 0.9 NACL AND DIUL
     Route: 030
     Dates: start: 20230208, end: 20230208
  2. DYSPORT [Suspect]
     Active Substance: ABOBOTULINUMTOXINA
     Indication: Skin wrinkling
     Dosage: 10 UNITS FOR GLABELLAR LINES AND 10 UNITS FOR LATERAL CANTHAL LINES. DILUENTS USED 0.9 NACL AND DIUL
     Route: 030
     Dates: start: 20230222, end: 20230222

REACTIONS (2)
  - Drug ineffective [Unknown]
  - Drug ineffective [Unknown]

NARRATIVE: CASE EVENT DATE: 20230222
